FAERS Safety Report 6420497-5 (Version None)
Quarter: 2009Q4

REPORT INFORMATION
  Report Type: 
  Country: None (occurrence: None)
  Receive Date: 20091029
  Receipt Date: 20091022
  Transmission Date: 20100525
  Serious: Yes (Hospitalization)
  Sender: FDA-Public Use
  Company Number: BR-GENENTECH-292982

PATIENT
  Sex: Female

DRUGS (3)
  1. TRASTUZUMAB [Suspect]
     Indication: BREAST CANCER
     Dosage: 4 MG/KG, X1
     Route: 042
     Dates: start: 20090915
  2. LAPATINIB [Suspect]
     Indication: BREAST CANCER
     Dosage: 1000 MG, UNK
     Route: 048
     Dates: start: 20090915
  3. PACLITAXEL [Suspect]
     Indication: BREAST CANCER
     Dosage: 80 MG/M2, UNK
     Route: 042
     Dates: start: 20090915

REACTIONS (4)
  - DIARRHOEA [None]
  - HYPOKALAEMIA [None]
  - INFECTION [None]
  - PNEUMONIA [None]
